FAERS Safety Report 6237987-0 (Version None)
Quarter: 2009Q2

REPORT INFORMATION
  Report Type: 
  Country: None (occurrence: None)
  Receive Date: 20090617
  Receipt Date: 20090617
  Transmission Date: 20091009
  Serious: No
  Sender: FDA-Public Use
  Company Number: None

PATIENT
  Age: 51 Year
  Sex: Male
  Weight: 99.7913 kg

DRUGS (1)
  1. FACTIVE [Suspect]
     Indication: UPPER RESPIRATORY TRACT INFECTION

REACTIONS (10)
  - ABDOMINAL DISCOMFORT [None]
  - DIARRHOEA [None]
  - DIZZINESS [None]
  - ECONOMIC PROBLEM [None]
  - HEADACHE [None]
  - HYPOAESTHESIA [None]
  - PAIN [None]
  - PARAESTHESIA [None]
  - PHOTOPHOBIA [None]
  - SOMNOLENCE [None]
